FAERS Safety Report 4364604-7 (Version None)
Quarter: 2004Q2

REPORT INFORMATION
  Report Type: 
  Country: None (occurrence: None)
  Receive Date: 20040521
  Receipt Date: 20040510
  Transmission Date: 20050107
  Serious: Yes (Hospitalization)
  Sender: FDA-Public Use
  Company Number: 04P-163-0230201-00

PATIENT
  Sex: Female

DRUGS (14)
  1. HUMIRA [Suspect]
     Indication: RHEUMATOID ARTHRITIS
     Dosage: 40 MG, 1 IN 2 WK, SUBCUTANEOUS
     Route: 058
     Dates: start: 20030801, end: 20030901
  2. HUMIRA [Suspect]
     Indication: RHEUMATOID ARTHRITIS
     Dosage: 40 MG, 1 IN 2 WK, SUBCUTANEOUS
     Route: 058
     Dates: start: 20031001, end: 20031104
  3. HUMIRA [Suspect]
     Indication: RHEUMATOID ARTHRITIS
     Dosage: 40 MG, SUBCUTANEOUS
     Route: 058
     Dates: start: 20030101, end: 20031222
  4. PREDNISONE [Concomitant]
  5. LEFLUNOMIDE [Concomitant]
  6. HYDROXYCHLOROQUINE PHSOPHATE [Concomitant]
  7. OXYCODONE [Concomitant]
  8. FLUCONAZOLE [Concomitant]
  9. LIDODERM [Concomitant]
  10. SPIRONOLACTONE [Concomitant]
  11. AMITRIPTYLINE HCL [Concomitant]
  12. ESOMEPRAZOLE [Concomitant]
  13. METOCLOPRAMIDE [Concomitant]
  14. BUPROPION HYDROCHLORIDE [Concomitant]

REACTIONS (5)
  - CHRONIC OBSTRUCTIVE AIRWAYS DISEASE EXACERBATED [None]
  - COUGH [None]
  - GASTROINTESTINAL HAEMORRHAGE [None]
  - LUNG INFECTION [None]
  - PNEUMONIA [None]
